FAERS Safety Report 9057262 (Version 1)
Quarter: 2013Q1

REPORT INFORMATION
  Report Type: Report from Study
  Country: JP (occurrence: JP)
  Receive Date: 20130131
  Receipt Date: 20130131
  Transmission Date: 20140127
  Serious: Yes (Other)
  Sender: FDA-Public Use
  Company Number: JP-GLAXOSMITHKLINE-B0860281A

PATIENT
  Age: 37 None
  Sex: Female
  Weight: 45 kg

DRUGS (3)
  1. TYKERB [Suspect]
     Indication: BREAST CANCER
     Route: 048
     Dates: start: 20091207
  2. XELODA [Suspect]
     Route: 048
     Dates: start: 20091207
  3. ALLELOCK [Concomitant]
     Indication: URTICARIA
     Route: 048
     Dates: start: 20091228

REACTIONS (8)
  - Compression fracture [Recovered/Resolved]
  - Constipation [Recovered/Resolved]
  - Diarrhoea [Recovered/Resolved]
  - Nasopharyngitis [Recovered/Resolved]
  - Dermatitis [Recovered/Resolved]
  - Dermatitis [Recovered/Resolved]
  - Nasopharyngitis [Recovered/Resolved]
  - Eczema [Recovered/Resolved]
